FAERS Safety Report 9580958 (Version 1)
Quarter: 2013Q4

REPORT INFORMATION
  Report Type: Spontaneous
  Country: US (occurrence: US)
  Receive Date: 20131002
  Receipt Date: 20131002
  Transmission Date: 20140711
  Serious: No
  Sender: FDA-Public Use
  Company Number: US-PFIZER INC-2013276485

PATIENT
  Age: 86 Year
  Sex: Female
  Weight: 61.22 kg

DRUGS (5)
  1. TOVIAZ [Suspect]
     Indication: POLLAKIURIA
     Dosage: 4 MG, DAILY
     Dates: start: 20130902, end: 20130916
  2. SINEMET [Concomitant]
     Indication: PARKINSON^S DISEASE
     Dosage: 25/100 MG, 5X/DAY
  3. SINEMET-CR [Concomitant]
     Indication: PARKINSON^S DISEASE
     Dosage: 50/200 MG, 5X/DAY
  4. NEURONTIN [Concomitant]
     Indication: PARKINSON^S DISEASE
     Dosage: (300MG IN MORNING AND 200MG IN EVENING) UNK, 2XDAY
  5. REQUIP [Concomitant]
     Dosage: 6 MG, DAILY

REACTIONS (1)
  - Drug ineffective [Recovered/Resolved]
